FAERS Safety Report 9451156 (Version 3)
Quarter: 2014Q1

REPORT INFORMATION
  Report Type: Report from Study
  Country: US (occurrence: US)
  Receive Date: 20130809
  Receipt Date: 20140328
  Transmission Date: 20141002
  Serious: Yes (Other)
  Sender: FDA-Public Use
  Company Number: US-US-EMD SERONO, INC.-7228687

PATIENT
  Age: 54 Year
  Sex: Female

DRUGS (2)
  1. REBIF [Suspect]
     Indication: MULTIPLE SCLEROSIS
     Route: 058
     Dates: start: 20091202, end: 20130723
  2. REBIF [Suspect]
     Dates: start: 20130910, end: 201401

REACTIONS (6)
  - Benign neoplasm of thyroid gland [Not Recovered/Not Resolved]
  - Fall [Unknown]
  - Head injury [Recovered/Resolved]
  - Hypokinesia [Unknown]
  - Feeling abnormal [Unknown]
  - Pain in extremity [Unknown]
